FAERS Safety Report 17103163 (Version 1)
Quarter: 2019Q4

REPORT INFORMATION
  Report Type: Spontaneous
  Country: GB (occurrence: GB)
  Receive Date: 20191203
  Receipt Date: 20191203
  Transmission Date: 20200122
  Serious: Yes (Hospitalization)
  Sender: FDA-Public Use
  Company Number: GB-SAMSUNG BIOEPIS-SB-2019-35006

PATIENT
  Age: 26 Year
  Sex: Female
  Weight: 70.9 kg

DRUGS (7)
  1. EPIRUBICIN [Concomitant]
     Active Substance: EPIRUBICIN
     Indication: PRODUCT USED FOR UNKNOWN INDICATION
     Dosage: THREE CYCLES
     Route: 065
  2. TRASTUZUMAB. [Suspect]
     Active Substance: TRASTUZUMAB
     Indication: APOCRINE BREAST CARCINOMA
     Dosage: FOURTH CYCLE
     Route: 042
     Dates: start: 20190215
  3. CYCLOPHOSPHAMIDE. [Concomitant]
     Active Substance: CYCLOPHOSPHAMIDE
     Indication: PRODUCT USED FOR UNKNOWN INDICATION
     Dosage: THREE CYCLES
     Route: 065
     Dates: start: 20181213, end: 20190124
  4. FILGRASTIM [Concomitant]
     Active Substance: FILGRASTIM
     Indication: PRODUCT USED FOR UNKNOWN INDICATION
     Dosage: UNKNOWN
     Route: 065
  5. MEROPENEM. [Concomitant]
     Active Substance: MEROPENEM
     Indication: PRODUCT USED FOR UNKNOWN INDICATION
     Dosage: UNKNOWN
     Route: 042
  6. PERTUZUMAB. [Suspect]
     Active Substance: PERTUZUMAB
     Indication: BREAST CANCER
     Dosage: FOURTH CYCLE
     Route: 042
     Dates: start: 20190215, end: 20190215
  7. DOCETAXEL. [Suspect]
     Active Substance: DOCETAXEL
     Indication: BREAST CANCER
     Dosage: FOURTH CYCLE
     Route: 042
     Dates: start: 20190215, end: 20190215

REACTIONS (10)
  - Vomiting [Unknown]
  - Oesophagitis [Recovering/Resolving]
  - Product use in unapproved indication [Unknown]
  - Gastritis [Recovered/Resolved]
  - Myalgia [Unknown]
  - Fatigue [Unknown]
  - Abdominal pain [Unknown]
  - Pyrexia [Unknown]
  - Diarrhoea [Unknown]
  - Nausea [Unknown]

NARRATIVE: CASE EVENT DATE: 20190216
